FAERS Safety Report 4356354-8 (Version None)
Quarter: 2004Q2

REPORT INFORMATION
  Report Type: 
  Country: None (occurrence: None)
  Receive Date: 20040511
  Receipt Date: 20040511
  Transmission Date: 20050107
  Serious: Yes (Hospitalization, Disabling)
  Sender: FDA-Public Use
  Company Number: None

PATIENT
  Age: 55 Year
  Sex: Male
  Weight: 111.1313 kg

DRUGS (1)
  1. LIPITOR [Suspect]
     Indication: BLOOD CHOLESTEROL INCREASED
     Dosage: ONE DAILY ORAL
     Route: 048
     Dates: start: 20040120, end: 20040320

REACTIONS (4)
  - ARTHRALGIA [None]
  - ASTHENIA [None]
  - MUSCLE ATROPHY [None]
  - RENAL CELL CARCINOMA STAGE UNSPECIFIED [None]
